FAERS Safety Report 7197495-X (Version None)
Quarter: 2010Q4

REPORT INFORMATION
  Report Type: 
  Country: None (occurrence: None)
  Receive Date: 20101213
  Receipt Date: 20101203
  Transmission Date: 20110411
  Serious: Yes (Other)
  Sender: FDA-Public Use
  Company Number: 2010PV000102

PATIENT
  Sex: Male

DRUGS (6)
  1. DEPOCYT [Suspect]
     Indication: MEDULLOBLASTOMA RECURRENT
     Dosage: 25 MG;1X;INTH
     Route: 037
  2. ETOPOSIDE [Concomitant]
  3. CYCLOPHOSPHAMIDE [Concomitant]
  4. TEMOZOLOMIDE [Concomitant]
  5. TROFOSFAMIDE [Concomitant]
  6. DEXAMETHASONE [Concomitant]

REACTIONS (3)
  - MALIGNANT NEOPLASM PROGRESSION [None]
  - MEDULLOBLASTOMA [None]
  - NEUROLOGICAL DECOMPENSATION [None]
